FAERS Safety Report 7340647-6 (Version None)
Quarter: 2011Q1

REPORT INFORMATION
  Report Type: 
  Country: None (occurrence: None)
  Receive Date: 20110228
  Receipt Date: 20110217
  Transmission Date: 20110831
  Serious: Yes (Hospitalization)
  Sender: FDA-Public Use
  Company Number: DKLU1068401

PATIENT
  Sex: Female
  Weight: 60.782 kg

DRUGS (9)
  1. DIFFERIN [Concomitant]
  2. FRISIUM (CLOBAZAM) [Concomitant]
  3. DIASTAT (DIAZEPAM) (GEL) [Concomitant]
  4. CALCIUM (CALCIUM) [Concomitant]
  5. SABRIL [Suspect]
     Indication: CONVULSION
     Dosage: 1 G GRAM(S), 2 IN 1 D, ORAL
     Route: 048
     Dates: start: 20110122
  6. OXCARBAZEPINE [Concomitant]
  7. LEXAPRO FILM-COATED TABLETS (ESCITALOPRAM-TABLETS) (ESCITALOPRAM) [Concomitant]
  8. ZONISAMIDE [Concomitant]
  9. TOPIRAMATE [Concomitant]

REACTIONS (5)
  - CERVICAL VERTEBRAL FRACTURE [None]
  - NECK INJURY [None]
  - PAIN IN EXTREMITY [None]
  - CHEST PAIN [None]
  - FALL [None]
